FAERS Safety Report 11191172 (Version 2)
Quarter: 2015Q4

REPORT INFORMATION
  Report Type: Spontaneous
  Country: DE (occurrence: DE)
  Receive Date: 20150615
  Receipt Date: 20151209
  Transmission Date: 20160304
  Serious: Yes (Hospitalization)
  Sender: FDA-Public Use
  Company Number: DE-ALLERGAN-1511027US

PATIENT
  Age: 21 Year
  Sex: Female

DRUGS (7)
  1. LIDOCAIN [Concomitant]
     Active Substance: LIDOCAINE
     Route: 061
  2. TIZANIDIN ACTAVIS [Concomitant]
     Indication: MUSCLE SPASMS
     Dosage: 3*2G, UNK
  3. BOTOX [Suspect]
     Active Substance: ONABOTULINUMTOXINA
     Indication: MUSCLE SPASTICITY
     Dosage: 150 UNITS, SINGLE
     Route: 030
     Dates: start: 20150602, end: 20150602
  4. METAMIZOL [Concomitant]
     Active Substance: METAMIZOLE SODIUM
     Dosage: 4000 MG, UNK
     Route: 048
  5. AMINEURIN [Concomitant]
     Active Substance: AMITRIPTYLINE HYDROCHLORIDE
     Dosage: 10 MG, UNK
     Route: 048
  6. BOTOX [Suspect]
     Active Substance: ONABOTULINUMTOXINA
     Indication: MUSCLE SPASTICITY
     Dosage: 50 + 100 UNITS, SINGLE
     Route: 030
     Dates: start: 20150602, end: 20150602
  7. VENLAFAXINE [Concomitant]
     Active Substance: VENLAFAXINE HYDROCHLORIDE
     Indication: DEPRESSION
     Dosage: 75 MG, SINGLE
     Route: 030
     Dates: start: 20150602, end: 20150602

REACTIONS (1)
  - Eczema [Not Recovered/Not Resolved]

NARRATIVE: CASE EVENT DATE: 20150604
